FAERS Safety Report 6434345-0 (Version None)
Quarter: 2009Q4

REPORT INFORMATION
  Report Type: 
  Country: None (occurrence: None)
  Receive Date: 20091110
  Receipt Date: 20090722
  Transmission Date: 20100525
  Serious: No
  Sender: FDA-Public Use
  Company Number: US-ASTRAZENECA-2009SE10121

PATIENT
  Age: 67 Year
  Sex: Female

DRUGS (8)
  1. PRILOSEC OTC [Suspect]
     Indication: DYSPEPSIA
     Dosage: 1 TABLET, 2 /DAY
     Route: 048
     Dates: start: 20090629
  2. PRILOSEC OTC [Suspect]
     Indication: BARRETT'S OESOPHAGUS
     Dosage: 1 TABLET, 2 /DAY
     Route: 048
     Dates: start: 20090629
  3. PRILOSEC OTC [Suspect]
     Dosage: 1 TABLET, 1 /DAY
     Route: 048
  4. PRILOSEC OTC [Suspect]
     Dosage: 1 TABLET, 1 /DAY
     Route: 048
  5. VITAMINS [Concomitant]
  6. THYROID THERAPY [Concomitant]
  7. FORTEO [Concomitant]
  8. LEXAPRO [Concomitant]

REACTIONS (3)
  - CONDITION AGGRAVATED [None]
  - DYSPEPSIA [None]
  - FREQUENT BOWEL MOVEMENTS [None]
